FAERS Safety Report 19196311 (Version 3)
Quarter: 2021Q2

REPORT INFORMATION
  Report Type: Report from Study
  Country: MY (occurrence: MY)
  Receive Date: 20210429
  Receipt Date: 20210601
  Transmission Date: 20210717
  Serious: Yes (Death, Other)
  Sender: FDA-Public Use
  Company Number: MY-SEATTLE GENETICS-2021SGN02476

PATIENT
  Sex: Female

DRUGS (1)
  1. BRENTUXIMAB VEDOTIN [Suspect]
     Active Substance: BRENTUXIMAB VEDOTIN
     Indication: ANAPLASTIC LARGE-CELL LYMPHOMA
     Dosage: 81 MILLIGRAM, Q3WEEKS
     Route: 042
     Dates: start: 20210113

REACTIONS (3)
  - Death [Fatal]
  - Anaplastic large-cell lymphoma [Unknown]
  - Drug ineffective [Unknown]
